FAERS Safety Report 18353767 (Version 1)
Quarter: 2020Q4

REPORT INFORMATION
  Report Type: Spontaneous
  Country: CA (occurrence: CA)
  Receive Date: 20201006
  Receipt Date: 20201006
  Transmission Date: 20210114
  Serious: Yes (Hospitalization, Other)
  Sender: FDA-Public Use
  Company Number: CA-009507513-2010CAN000157

PATIENT
  Age: 66 Year
  Sex: Female

DRUGS (4)
  1. KEYTRUDA [Suspect]
     Active Substance: PEMBROLIZUMAB
     Dosage: LAST AND 3RD DOSE
     Dates: start: 20200403, end: 20200403
  2. KEYTRUDA [Suspect]
     Active Substance: PEMBROLIZUMAB
     Indication: NON-SMALL CELL LUNG CANCER STAGE IV
     Dosage: FIRST DOSE
     Dates: start: 202002
  3. OSIMERTINIB. [Suspect]
     Active Substance: OSIMERTINIB
     Dosage: II
     Dates: start: 20200511, end: 202006
  4. SOLU-MEDROL [Suspect]
     Active Substance: METHYLPREDNISOLONE SODIUM SUCCINATE

REACTIONS (9)
  - Stomatitis [Unknown]
  - General physical health deterioration [Unknown]
  - Drug intolerance [Unknown]
  - Colitis [Not Recovered/Not Resolved]
  - Gastrooesophageal reflux disease [Unknown]
  - Large intestinal ulcer [Not Recovered/Not Resolved]
  - Asthenia [Unknown]
  - Diarrhoea [Not Recovered/Not Resolved]
  - Myalgia [Unknown]

NARRATIVE: CASE EVENT DATE: 2020
